FAERS Safety Report 8915964 (Version 1)
Quarter: 2012Q4

REPORT INFORMATION
  Report Type: 
  Country: US (occurrence: US)
  Receive Date: 20121119
  Receipt Date: 20121119
  Transmission Date: 20130627
  Serious: Yes (Other)
  Sender: FDA-Public Use
  Company Number: US-JNJFOC-20121106988

PATIENT
  Age: 61 Year
  Sex: Male

DRUGS (1)
  1. NICOTINE POLACRILEX GUM [Suspect]
     Indication: SMOKING CESSATION THERAPY
     Route: 002
     Dates: start: 2002

REACTIONS (3)
  - Lip and/or oral cavity cancer [Unknown]
  - Intentional drug misuse [Unknown]
  - Oral disorder [Unknown]
